FAERS Safety Report 5925893-8 (Version None)
Quarter: 2008Q4

REPORT INFORMATION
  Report Type: 
  Country: None (occurrence: None)
  Receive Date: 20081021
  Receipt Date: 20081009
  Transmission Date: 20090506
  Serious: Yes (Other)
  Sender: FDA-Public Use
  Company Number: CA-PFIZER INC-2008085259

PATIENT
  Age: 53 Year
  Sex: Female

DRUGS (3)
  1. DIFLUCAN [Suspect]
     Indication: MENINGITIS CRYPTOCOCCAL
     Route: 048
     Dates: start: 20080701
  2. TYLENOL [Concomitant]
  3. ELAVIL [Concomitant]

REACTIONS (1)
  - WEIGHT DECREASED [None]
